FAERS Safety Report 16591612 (Version 1)
Quarter: 2019Q3

REPORT INFORMATION
  Report Type: Spontaneous
  Country: US (occurrence: US)
  Receive Date: 20190718
  Receipt Date: 20190718
  Transmission Date: 20191004
  Serious: No
  Sender: FDA-Public Use
  Company Number: US-GLAXOSMITHKLINE-US2019123599

PATIENT
  Age: 78 Year
  Sex: Female

DRUGS (2)
  1. DICLOFENAC SODIUM GEL [Suspect]
     Active Substance: DICLOFENAC SODIUM
     Indication: BACK PAIN
     Dosage: UNK (USE IT 2-3 TIMES A DAY)
     Dates: start: 20190617
  2. DICLOFENAC SODIUM GEL [Suspect]
     Active Substance: DICLOFENAC SODIUM
     Indication: ARTHRALGIA
     Dosage: UNK (USE IT 2-3 TIMES A DAY)
     Dates: start: 20190527

REACTIONS (5)
  - Therapeutic product effect incomplete [Unknown]
  - Product administered at inappropriate site [Unknown]
  - Inappropriate schedule of product administration [Unknown]
  - Product use in unapproved indication [Unknown]
  - Drug effective for unapproved indication [Unknown]
